FAERS Safety Report 10084646 (Version 1)
Quarter: 2014Q2

REPORT INFORMATION
  Report Type: Report from Study
  Country: US (occurrence: US)
  Receive Date: 20140417
  Receipt Date: 20140417
  Transmission Date: 20141212
  Serious: Yes (Hospitalization)
  Sender: FDA-Public Use
  Company Number: US-SA-2014SA043656

PATIENT
  Age: 33 Year
  Sex: Female

DRUGS (1)
  1. AUBAGIO [Suspect]
     Indication: MULTIPLE SCLEROSIS
     Route: 048
     Dates: start: 20131024

REACTIONS (5)
  - Decubitus ulcer [Unknown]
  - Dehydration [Unknown]
  - Urinary tract infection [Unknown]
  - Infection [Unknown]
  - Sepsis [Unknown]
